FAERS Safety Report 11725294 (Version 1)
Quarter: 2015Q4

REPORT INFORMATION
  Report Type: Spontaneous
  Country: US (occurrence: US)
  Receive Date: 20151111
  Receipt Date: 20151111
  Transmission Date: 20160304
  Serious: No
  Sender: FDA-Public Use
  Company Number: US-UCBSA-2015019853

PATIENT
  Age: 52 Year
  Sex: Male

DRUGS (10)
  1. LACOSAMIDE [Suspect]
     Active Substance: LACOSAMIDE
     Indication: NEUROPATHY PERIPHERAL
     Dosage: 100 MG, 2X/DAY (BID)
  2. ADRIAMYCIN [Concomitant]
     Active Substance: DOXORUBICIN HYDROCHLORIDE
     Indication: TRANSITIONAL CELL CARCINOMA
     Dosage: 3 CYCLES
  3. MORPHINE [Concomitant]
     Active Substance: MORPHINE
     Indication: NEUROPATHY PERIPHERAL
     Dosage: 30 MG, 2X/DAY (BID)
  4. METHOTREXATE [Concomitant]
     Active Substance: METHOTREXATE
     Indication: TRANSITIONAL CELL CARCINOMA
     Dosage: 3 CYCLES
  5. GABAPENTIN. [Concomitant]
     Active Substance: GABAPENTIN
     Indication: NEUROPATHY PERIPHERAL
     Dosage: 400 MG, 2X/DAY (BID)
  6. CISPLATIN. [Concomitant]
     Active Substance: CISPLATIN
     Indication: TRANSITIONAL CELL CARCINOMA
     Dosage: 3 CYCLES
  7. OXYCODONE [Concomitant]
     Active Substance: OXYCODONE
     Indication: NEUROPATHY PERIPHERAL
     Dosage: 10-325 MG AS NEEDED
  8. ACETAMINOPHEN. [Concomitant]
     Active Substance: ACETAMINOPHEN
     Indication: NEUROPATHY PERIPHERAL
     Dosage: 10-325 MG AS NEEDED
  9. LACOSAMIDE [Suspect]
     Active Substance: LACOSAMIDE
     Indication: OFF LABEL USE
  10. VINCRISTINE [Concomitant]
     Active Substance: VINCRISTINE
     Indication: TRANSITIONAL CELL CARCINOMA
     Dosage: 3 CYCLES

REACTIONS (2)
  - Off label use [Unknown]
  - Therapeutic response unexpected [Recovered/Resolved]
